FAERS Safety Report 4724658-2 (Version None)
Quarter: 2005Q3

REPORT INFORMATION
  Report Type: 
  Country: None (occurrence: None)
  Receive Date: 20050719
  Receipt Date: 20050719
  Transmission Date: 20060218
  Serious: Yes (Other)
  Sender: FDA-Public Use
  Company Number: None

PATIENT
  Age: 70 Year
  Sex: Female

DRUGS (6)
  1. ZETIA [Suspect]
     Indication: BLOOD CHOLESTEROL INCREASED
     Dosage: 1 TABLET DAILY
     Dates: start: 20050513, end: 20050708
  2. MIACALCIN [Concomitant]
  3. FOSAMAX [Concomitant]
  4. VAGIFEM [Concomitant]
  5. SYNTHROID [Concomitant]
  6. CALCIUM CITRATE [Concomitant]

REACTIONS (3)
  - ABNORMAL SENSATION IN EYE [None]
  - HEADACHE [None]
  - TREATMENT NONCOMPLIANCE [None]
